FAERS Safety Report 25452663 (Version 2)
Quarter: 2025Q3

REPORT INFORMATION
  Report Type: Spontaneous
  Country: US (occurrence: US)
  Receive Date: 20250618
  Receipt Date: 20250701
  Transmission Date: 20251020
  Serious: No
  Sender: TEVA
  Company Number: US-TEVA-VS-3342250

PATIENT

DRUGS (1)
  1. ADIPEX-P [Suspect]
     Active Substance: PHENTERMINE HYDROCHLORIDE
     Indication: Weight decreased
     Route: 065

REACTIONS (7)
  - Dry mouth [Unknown]
  - Suspected counterfeit product [Unknown]
  - Weight increased [Unknown]
  - Decreased appetite [Unknown]
  - Drug ineffective [Unknown]
  - Product formulation issue [Unknown]
  - Heart rate increased [Unknown]
